FAERS Safety Report 6728973-2 (Version None)
Quarter: 2010Q2

REPORT INFORMATION
  Report Type: 
  Country: None (occurrence: None)
  Receive Date: 20100517
  Receipt Date: 20100328
  Transmission Date: 20101027
  Serious: No
  Sender: FDA-Public Use
  Company Number: US-ABBOTT-10P-163-0632160-00

PATIENT
  Sex: Female
  Weight: 62.198 kg

DRUGS (7)
  1. SIMCOR [Suspect]
     Indication: BLOOD CHOLESTEROL INCREASED
     Dosage: 500/20 MG
     Dates: start: 20100223
  2. PREMARIN [Concomitant]
     Indication: HYSTERECTOMY
  3. PROZAC [Concomitant]
     Indication: DEPRESSION
  4. FISH OIL [Concomitant]
     Indication: BLOOD CHOLESTEROL INCREASED
  5. VITAMIN D [Concomitant]
     Indication: DRUG USE FOR UNKNOWN INDICATION
  6. CALCIUM [Concomitant]
     Indication: DRUG USE FOR UNKNOWN INDICATION
  7. MULTI-VITAMIN [Concomitant]
     Indication: DRUG USE FOR UNKNOWN INDICATION

REACTIONS (8)
  - ARTHRITIS [None]
  - ERYTHEMA [None]
  - FATIGUE [None]
  - HEADACHE [None]
  - HOT FLUSH [None]
  - INSOMNIA [None]
  - JOINT SWELLING [None]
  - PARAESTHESIA [None]
